FAERS Safety Report 4698912-7 (Version None)
Quarter: 2005Q2

REPORT INFORMATION
  Report Type: 
  Country: None (occurrence: None)
  Receive Date: 20050622
  Receipt Date: 20050622
  Transmission Date: 20051028
  Serious: Yes (Death)
  Sender: FDA-Public Use
  Company Number: None

PATIENT
  Sex: Male
  Weight: 79.5 kg

DRUGS (1)
  1. GEMCITABINE 1,000MG/M2 IV DAYS 1,8,15 AND 22 ON CYCLE 1 AND DAYS 1,8,1 [Suspect]
     Indication: PANCREATIC CARCINOMA
     Dosage: 1,000MG/M2 IV DAYS 1,8,15 AND 22 ON CYCLE 1 AND DAYS 1,8,15 OF ALL SUBSEQUENT CYCLES.
     Route: 042
     Dates: start: 20050420, end: 20050427

REACTIONS (9)
  - ABASIA [None]
  - ASTHENIA [None]
  - BRONCHITIS [None]
  - DECREASED APPETITE [None]
  - DEPRESSED LEVEL OF CONSCIOUSNESS [None]
  - DISEASE PROGRESSION [None]
  - HEPATIC LESION [None]
  - LETHARGY [None]
  - RHONCHI [None]
